FAERS Safety Report 5711337-8 (Version None)
Quarter: 2008Q2

REPORT INFORMATION
  Report Type: 
  Country: None (occurrence: None)
  Receive Date: 20080421
  Receipt Date: 20080415
  Transmission Date: 20081010
  Serious: Yes (Other)
  Sender: FDA-Public Use
  Company Number: A0722854A

PATIENT
  Age: 44 Year
  Sex: Female

DRUGS (11)
  1. IMITREX [Suspect]
     Indication: MIGRAINE
     Dosage: 100MG AS REQUIRED
     Route: 048
     Dates: start: 19950101
  2. AMERGE [Suspect]
     Indication: MIGRAINE
     Dosage: 2.5MG AS REQUIRED
     Route: 048
     Dates: start: 19980101
  3. IMITREX [Suspect]
     Dosage: 6MG AS REQUIRED
     Route: 058
     Dates: start: 19920101, end: 19950101
  4. MIDRIN [Concomitant]
  5. SYNTHROID [Concomitant]
  6. WELLBUTRIN XL [Concomitant]
  7. CO Q10 [Concomitant]
  8. MAGNESIUM [Concomitant]
  9. OMEGA 3 [Concomitant]
  10. CALCIUM [Concomitant]
  11. ADVIL [Concomitant]

REACTIONS (2)
  - RETINAL DETACHMENT [None]
  - VISUAL FIELD DEFECT [None]
